FAERS Safety Report 4603677-0 (Version None)
Quarter: 2005Q1

REPORT INFORMATION
  Report Type: 
  Country: None (occurrence: None)
  Receive Date: 20050310
  Receipt Date: 20040629
  Transmission Date: 20050727
  Serious: Yes (Other)
  Sender: FDA-Public Use
  Company Number: 200412529FR

PATIENT
  Age: 63 Year
  Sex: Male
  Weight: 64.5 kg

DRUGS (8)
  1. ARAVA [Suspect]
     Indication: RHEUMATOID ARTHRITIS
     Route: 048
     Dates: start: 20040205, end: 20041123
  2. CORTANCYL [Suspect]
     Indication: RHEUMATOID ARTHRITIS
     Route: 048
     Dates: start: 20040101, end: 20040101
  3. TOPALGIC [Concomitant]
     Route: 048
  4. COMBIVENT [Concomitant]
     Route: 055
  5. STILNOX [Concomitant]
     Route: 048
  6. OMEPRAZOLE [Concomitant]
     Route: 048
  7. FOSAMAX [Concomitant]
     Route: 048
     Dates: start: 20041025
  8. OROCAL [Concomitant]
     Route: 048

REACTIONS (3)
  - LUNG CANCER METASTATIC [None]
  - METASTASES TO LYMPH NODES [None]
  - POLYNEUROPATHY [None]
